FAERS Safety Report 6053904-0 (Version None)
Quarter: 2009Q1

REPORT INFORMATION
  Report Type: 
  Country: None (occurrence: None)
  Receive Date: 20090127
  Receipt Date: 20090116
  Transmission Date: 20090719
  Serious: Yes (Other)
  Sender: FDA-Public Use
  Company Number: CA-PFIZER INC-2008098659

PATIENT
  Sex: Male
  Weight: 102.51 kg

DRUGS (16)
  1. CELEBREX [Suspect]
     Indication: ARTHRITIS
     Dosage: 200 MG, 1X/DAY
     Dates: end: 20081119
  2. PROPRANOLOL [Concomitant]
  3. NEXIUM [Concomitant]
  4. PRAVASTATIN [Concomitant]
  5. AVAPRO [Concomitant]
     Dosage: UNK
     Dates: start: 20080822
  6. RAMIPRIL [Concomitant]
     Dosage: UNK
     Dates: start: 20081117
  7. RAMIPRIL [Concomitant]
     Dates: start: 20081117
  8. ACETAMINOPHEN [Concomitant]
     Dosage: UNK
  9. ASCORBIC ACID [Concomitant]
     Dosage: UNK
  10. GLUCOSAMINE SULFATE [Concomitant]
     Dosage: UNK
  11. CALCIUM [Concomitant]
     Dosage: UNK
  12. OMEGA 3-6-9 [Concomitant]
     Dosage: UNK
  13. COENZYME Q10 [Concomitant]
     Dosage: UNK
  14. ACETYLSALICYLIC ACID [Concomitant]
     Dosage: UNK
  15. VITAMIN D [Concomitant]
     Dosage: UNK
  16. ACIDOPHILUS [Concomitant]
     Dosage: UNK

REACTIONS (1)
  - RENAL DISORDER [None]
